FAERS Safety Report 7043809-0 (Version None)
Quarter: 2010Q4

REPORT INFORMATION
  Report Type: 
  Country: None (occurrence: None)
  Receive Date: 20101012
  Receipt Date: 20101012
  Transmission Date: 20110411
  Serious: No
  Sender: FDA-Public Use
  Company Number: None

PATIENT
  Age: 63 Year
  Sex: Female
  Weight: 65.7716 kg

DRUGS (2)
  1. VYTORIN [Suspect]
     Indication: BLOOD CHOLESTEROL INCREASED
     Dosage: 10/40 1 DAILY HS PO
     Route: 048
     Dates: start: 20090915, end: 20101006
  2. VYTORIN [Suspect]
     Indication: BLOOD TRIGLYCERIDES INCREASED
     Dosage: 10/40 1 DAILY HS PO
     Route: 048
     Dates: start: 20090915, end: 20101006

REACTIONS (2)
  - HYPERHIDROSIS [None]
  - TEMPERATURE INTOLERANCE [None]
